FAERS Safety Report 13836285 (Version 2)
Quarter: 2017Q4

REPORT INFORMATION
  Report Type: Report from Study
  Country: CA (occurrence: CA)
  Receive Date: 20170804
  Receipt Date: 20171121
  Transmission Date: 20180320
  Serious: Yes (Other)
  Sender: FDA-Public Use
  Company Number: PHHY2017CA003709

PATIENT
  Sex: Female

DRUGS (3)
  1. EXJADE [Suspect]
     Active Substance: DEFERASIROX
     Dosage: 500 MG, QD
     Route: 048
     Dates: start: 201709
  2. EXJADE [Suspect]
     Active Substance: DEFERASIROX
     Indication: MYELODYSPLASTIC SYNDROME
     Dosage: 1000 MG, QD
     Route: 048
     Dates: start: 20161209
  3. EXJADE [Suspect]
     Active Substance: DEFERASIROX
     Dosage: 500 MG, QD
     Route: 048
     Dates: end: 201705

REACTIONS (8)
  - Diarrhoea [Not Recovered/Not Resolved]
  - Serum ferritin decreased [Unknown]
  - Incorrect dose administered [Unknown]
  - Headache [Unknown]
  - Vomiting [Unknown]
  - Haemoglobin decreased [Unknown]
  - Blood catecholamines decreased [Unknown]
  - Restless legs syndrome [Unknown]
